FAERS Safety Report 6876973-4 (Version None)
Quarter: 2010Q3

REPORT INFORMATION
  Report Type: 
  Country: None (occurrence: None)
  Receive Date: 20100727
  Receipt Date: 20100713
  Transmission Date: 20110219
  Serious: Yes (Hospitalization)
  Sender: FDA-Public Use
  Company Number: US-ELI_LILLY_AND_COMPANY-US201007002850

PATIENT
  Sex: Female

DRUGS (10)
  1. FORTEO [Suspect]
     Indication: OSTEOPOROSIS
     Dosage: 20 UG, DAILY (1/D)
     Route: 065
  2. METFORMIN HCL [Concomitant]
  3. LISINOPRIL [Concomitant]
  4. METOPROLOL [Concomitant]
  5. NORVASC [Concomitant]
  6. ZOCOR [Concomitant]
  7. JANUVIA [Concomitant]
  8. VITAMIN E /001105/ [Concomitant]
  9. CALCIUM [Concomitant]
  10. PRILOSEC [Concomitant]

REACTIONS (5)
  - FALL [None]
  - GENERAL PHYSICAL CONDITION ABNORMAL [None]
  - HIP FRACTURE [None]
  - HYPOACUSIS [None]
  - PAIN [None]
